FAERS Safety Report 11124504 (Version 1)
Quarter: 2015Q2

REPORT INFORMATION
  Report Type: Spontaneous
  Country: CR (occurrence: CR)
  Receive Date: 20150520
  Receipt Date: 20150520
  Transmission Date: 20150821
  Serious: Yes (Other)
  Sender: FDA-Public Use
  Company Number: CR-ELI_LILLY_AND_COMPANY-CR201505004140

PATIENT
  Sex: Male

DRUGS (2)
  1. EXELON [Concomitant]
     Active Substance: RIVASTIGMINE TARTRATE
     Indication: PRODUCT USED FOR UNKNOWN INDICATION
     Dosage: UNK, UNKNOWN
     Route: 065
  2. CYMBALTA [Suspect]
     Active Substance: DULOXETINE HYDROCHLORIDE
     Indication: PRODUCT USED FOR UNKNOWN INDICATION
     Dosage: 1 DF, UNKNOWN
     Route: 065

REACTIONS (4)
  - Hip fracture [Recovered/Resolved]
  - Incoherent [Recovered/Resolved]
  - Aggression [Recovered/Resolved]
  - Fall [Recovered/Resolved]
